FAERS Safety Report 8296849-8 (Version None)
Quarter: 2012Q2

REPORT INFORMATION
  Report Type: 
  Country: None (occurrence: None)
  Receive Date: 20120419
  Receipt Date: 20120404
  Transmission Date: 20120825
  Serious: Yes (Other)
  Sender: FDA-Public Use
  Company Number: BR-AMGEN-BRASP2012022583

PATIENT
  Age: 35 Year
  Sex: Male
  Weight: 85.986 kg

DRUGS (4)
  1. ENBREL [Suspect]
     Dosage: 50 MG, ONCE WEEKLY, POWER AND SOLVENT FOR SOLUTION FOR INJECTION
     Route: 058
     Dates: start: 20100501, end: 20111201
  2. METHOTREXATE [Concomitant]
     Dosage: 4 TABLETS, ONCE WEEKLY
  3. ENBREL [Suspect]
     Indication: ANKYLOSING SPONDYLITIS
     Dosage: 50 MG, ONCE WEEKLY
     Route: 058
     Dates: start: 20120101
  4. NIMESULIDE [Concomitant]
     Dosage: TWO TABLETS, ONCE DAILY

REACTIONS (2)
  - INJECTION SITE PAIN [None]
  - SWELLING [None]
